FAERS Safety Report 5346058-7 (Version None)
Quarter: 2007Q2

REPORT INFORMATION
  Report Type: 
  Country: None (occurrence: None)
  Receive Date: 20070605
  Receipt Date: 20070529
  Transmission Date: 20071010
  Serious: Yes (Hospitalization)
  Sender: FDA-Public Use
  Company Number: GB-MERCK-0705GBR00066

PATIENT
  Age: 77 Year
  Sex: Male
  Weight: 83 kg

DRUGS (11)
  1. PROSCAR [Suspect]
     Indication: BENIGN PROSTATIC HYPERPLASIA
     Route: 048
     Dates: start: 20070224
  2. ASPIRIN [Concomitant]
     Route: 065
     Dates: start: 20000912
  3. DIGOXIN [Concomitant]
     Route: 065
     Dates: start: 20010809
  4. FUROSEMIDE [Concomitant]
     Route: 065
     Dates: start: 20000912
  5. NITROGLYCERIN [Concomitant]
     Route: 065
     Dates: start: 20060901
  6. METOPROLOL [Concomitant]
     Route: 065
     Dates: start: 20020722
  7. NICORANDIL [Concomitant]
     Route: 065
     Dates: start: 20000912
  8. SPIRONOLACTONE [Concomitant]
     Route: 065
     Dates: start: 20010326
  9. VALSARTAN [Concomitant]
     Route: 065
     Dates: start: 20010102
  10. ALFUZOSIN HYDROCHLORIDE [Concomitant]
     Route: 065
     Dates: start: 20070224
  11. ISOSORBIDE MONONITRATE [Concomitant]
     Route: 065
     Dates: start: 19971103

REACTIONS (2)
  - MUSCLE ATROPHY [None]
  - RASH [None]
